FAERS Safety Report 5015395-8 (Version None)
Quarter: 2006Q2

REPORT INFORMATION
  Report Type: 
  Country: None (occurrence: None)
  Receive Date: 20060601
  Receipt Date: 20060524
  Transmission Date: 20061013
  Serious: Yes (Hospitalization)
  Sender: FDA-Public Use
  Company Number: FR-JNJFOC-20060501821

PATIENT
  Age: 69 Year
  Sex: Male

DRUGS (17)
  1. OFLOCET [Suspect]
     Route: 048
     Dates: start: 20060318, end: 20060330
  2. OFLOCET [Suspect]
     Indication: INFLAMMATION
     Route: 048
     Dates: start: 20060318, end: 20060330
  3. METHOTREXATE [Suspect]
     Indication: DRUG USE FOR UNKNOWN INDICATION
     Route: 030
     Dates: start: 20060310, end: 20060330
  4. AUGMENTIN '125' [Suspect]
     Route: 042
     Dates: start: 20060317, end: 20060326
  5. AUGMENTIN '125' [Suspect]
     Indication: INFLAMMATION
     Route: 042
     Dates: start: 20060317, end: 20060326
  6. MOPRAL [Concomitant]
     Route: 065
  7. HYPERIUM [Concomitant]
     Route: 065
  8. ESIDRIX [Concomitant]
     Route: 065
  9. RENITEC [Concomitant]
     Route: 065
  10. LIPANTHYL [Concomitant]
     Route: 065
  11. ATARAX [Concomitant]
     Route: 065
  12. CACIT D3 [Concomitant]
     Route: 065
  13. CACIT D3 [Concomitant]
     Route: 065
  14. CORTANCYL [Concomitant]
     Route: 065
  15. NOVONORM [Concomitant]
     Route: 065
  16. DIFFU K [Concomitant]
     Route: 065
  17. TENORMIN [Concomitant]
     Route: 065

REACTIONS (1)
  - COLITIS ULCERATIVE [None]
